FAERS Safety Report 10879615 (Version 1)
Quarter: 2015Q1

REPORT INFORMATION
  Report Type: Spontaneous
  Country: JP (occurrence: JP)
  Receive Date: 20150302
  Receipt Date: 20150302
  Transmission Date: 20150721
  Serious: Yes (Death)
  Sender: FDA-Public Use
  Company Number: JP-MYLANLABS-2015M1006215

PATIENT

DRUGS (1)
  1. PRAVASTATIN NA TABLETS 5MG ^KH^ [Suspect]
     Active Substance: PRAVASTATIN SODIUM
     Indication: HYPERLIPIDAEMIA
     Dosage: 10 MG, QD
     Route: 065

REACTIONS (3)
  - Rhabdomyolysis [Fatal]
  - Purpura fulminans [Fatal]
  - Disseminated intravascular coagulation [Fatal]
